FAERS Safety Report 9605981 (Version 1)
Quarter: 2013Q4

REPORT INFORMATION
  Report Type: Spontaneous
  Country: US (occurrence: US)
  Receive Date: 20131008
  Receipt Date: 20131008
  Transmission Date: 20140711
  Serious: No
  Sender: FDA-Public Use
  Company Number: US-AMGEN-USASP2013038090

PATIENT
  Age: 87 Year
  Sex: Male

DRUGS (6)
  1. PROLIA [Suspect]
     Indication: PRODUCT USED FOR UNKNOWN INDICATION
     Dosage: UNK
     Dates: start: 201303
  2. LUPRON DEPOT [Concomitant]
  3. CITRACAL                           /00751520/ [Concomitant]
  4. VITAMIN D                          /00318501/ [Concomitant]
  5. GLUCOSAMINE [Concomitant]
  6. ASPIRIN [Concomitant]

REACTIONS (2)
  - Cough [Unknown]
  - Respiratory disorder [Unknown]
